FAERS Safety Report 6517608-X (Version None)
Quarter: 2009Q4

REPORT INFORMATION
  Report Type: 
  Country: None (occurrence: None)
  Receive Date: 20091224
  Receipt Date: 20091216
  Transmission Date: 20100525
  Serious: Yes (Other)
  Sender: FDA-Public Use
  Company Number: PHHY2008CA30091

PATIENT
  Sex: Female

DRUGS (2)
  1. ACLASTA [Suspect]
     Indication: OSTEOPOROSIS
     Dosage: UNK
     Dates: start: 20081124
  2. ACLASTA [Suspect]
     Dosage: UNK
     Route: 042
     Dates: start: 20091216

REACTIONS (6)
  - ABDOMINAL DISCOMFORT [None]
  - ABDOMINAL PAIN UPPER [None]
  - CARDIAC DISORDER [None]
  - DIZZINESS [None]
  - GASTROINTESTINAL PAIN [None]
  - HEADACHE [None]
